FAERS Safety Report 6879739-4 (Version None)
Quarter: 2010Q3

REPORT INFORMATION
  Report Type: 
  Country: None (occurrence: None)
  Receive Date: 20100728
  Receipt Date: 20100719
  Transmission Date: 20110219
  Serious: Yes (Hospitalization)
  Sender: FDA-Public Use
  Company Number: KR-SANOFI-AVENTIS-2010SA017385

PATIENT
  Age: 28 Year
  Sex: Female

DRUGS (6)
  1. LEFLUNOMIDE [Suspect]
     Route: 048
  2. LEFLUNOMIDE [Suspect]
     Route: 048
  3. GANCICLOVIR [Concomitant]
     Route: 042
  4. GANCICLOVIR [Concomitant]
     Dosage: 5 DAYS A WEEK
     Route: 042
  5. ACYCLOVIR [Concomitant]
     Route: 042
  6. SULFAMETHOXAZOLE AND TRIMETHOPRIM [Concomitant]
     Dosage: 320/1600 MG/DAY

REACTIONS (1)
  - HEPATIC FUNCTION ABNORMAL [None]
